FAERS Safety Report 8395914-4 (Version None)
Quarter: 2012Q2

REPORT INFORMATION
  Report Type: 
  Country: None (occurrence: None)
  Receive Date: 20120530
  Receipt Date: 20120521
  Transmission Date: 20120825
  Serious: Yes (Hospitalization, Other)
  Sender: FDA-Public Use
  Company Number: TR-ELI_LILLY_AND_COMPANY-TR201205007514

PATIENT
  Age: 19 Year
  Sex: Female

DRUGS (3)
  1. HUMULIN R [Suspect]
     Dosage: 18 IU, TID
     Route: 058
     Dates: start: 20120515
  2. HUMULIN N [Suspect]
     Dosage: 20 IU QD
     Route: 058
     Dates: start: 20120515
  3. HUMULIN N [Suspect]
     Dosage: 24 IU QD
     Dates: start: 20120515

REACTIONS (3)
  - HAEMORRHAGE [None]
  - MATERNAL EXPOSURE DURING PREGNANCY [None]
  - ABORTION [None]
